FAERS Safety Report 21251208 (Version 2)
Quarter: 2022Q3

REPORT INFORMATION
  Report Type: Spontaneous
  Country: JP (occurrence: JP)
  Receive Date: 20220825
  Receipt Date: 20220829
  Transmission Date: 20221027
  Serious: Yes (Hospitalization, Other)
  Sender: FDA-Public Use
  Company Number: JP-SUN PHARMACEUTICAL INDUSTRIES LTD-2022RR-349695

PATIENT
  Age: 74 Year
  Sex: Male

DRUGS (4)
  1. OXALIPLATIN [Suspect]
     Active Substance: OXALIPLATIN
     Indication: Gastric cancer stage IV
     Dosage: 100 MILLIGRAM/SQ. METER, PER CYCLE, FOR 2 WEEKS FOLLOWED BY A 1-WEEK REST, 4 COURSES
     Route: 065
  2. PACLITAXEL [Suspect]
     Active Substance: PACLITAXEL
     Indication: Gastric cancer stage IV
     Dosage: 100 MILLIGRAM/SQ. METER, ON DAYS 1, 8, 15, EVERY 4 WEEKS
     Route: 065
  3. RAMUCIRUMAB [Suspect]
     Active Substance: RAMUCIRUMAB
     Indication: Gastric cancer stage IV
     Dosage: 8 MILLIGRAM/KILOGRAM, ON DAYS 1 AND 15, EVERY 4 WEEKS
     Route: 065
  4. TS-1 [Suspect]
     Active Substance: GIMERACIL\OTERACIL\TEGAFUR
     Indication: Gastric cancer stage IV
     Dosage: 80 MILLIGRAM/BODY, DAILY, 4 COURSES
     Route: 065

REACTIONS (3)
  - Drug ineffective [Unknown]
  - Malignant neoplasm progression [Unknown]
  - Neutropenia [Unknown]
